FAERS Safety Report 13865944 (Version 7)
Quarter: 2017Q4

REPORT INFORMATION
  Report Type: Spontaneous
  Country: US (occurrence: US)
  Receive Date: 20170814
  Receipt Date: 20171121
  Transmission Date: 20180320
  Serious: Yes (Death, Congenital Anomaly, Other)
  Sender: FDA-Public Use
  Company Number: PHEH2017US025318

PATIENT
  Sex: Male

DRUGS (2)
  1. ZOFRAN [Suspect]
     Active Substance: ONDANSETRON HYDROCHLORIDE
     Indication: FOETAL EXPOSURE DURING PREGNANCY
     Route: 064
  2. ONDANSETRONE RANBAXY [Suspect]
     Active Substance: ONDANSETRON HYDROCHLORIDE
     Indication: FOETAL EXPOSURE DURING PREGNANCY
     Dosage: MOTHER^S DOSE: 1 DF, Q6H, PRN
     Route: 064

REACTIONS (32)
  - Left-to-right cardiac shunt [Unknown]
  - Renal failure [Unknown]
  - Lactic acidosis [Unknown]
  - Left ventricular dysfunction [Unknown]
  - Transposition of the great vessels [Fatal]
  - Persistent foetal circulation [Unknown]
  - Left ventricular enlargement [Unknown]
  - Aortic valve incompetence [Unknown]
  - Pericardial effusion [Unknown]
  - Mitral valve incompetence [Unknown]
  - Right ventricular hypertrophy [Unknown]
  - Right ventricular dysfunction [Unknown]
  - Ventricular hypertrophy [Unknown]
  - Patent ductus arteriosus [Unknown]
  - Heart disease congenital [Unknown]
  - Right ventricular dilatation [Unknown]
  - Right ventricular enlargement [Unknown]
  - Pulmonary oedema neonatal [Unknown]
  - Gastrooesophageal reflux disease [Unknown]
  - Neonatal respiratory distress syndrome [Unknown]
  - Pulmonary embolism [Unknown]
  - Neonatal hypoxia [Unknown]
  - Injury [Unknown]
  - Atrial septal defect [Fatal]
  - Sepsis neonatal [Unknown]
  - Foetal exposure during pregnancy [Unknown]
  - Left atrial dilatation [Unknown]
  - Left ventricular dilatation [Unknown]
  - Congenital aortic stenosis [Unknown]
  - Pulmonary artery stenosis congenital [Unknown]
  - Right atrial dilatation [Unknown]
  - Haemosiderosis [Unknown]

NARRATIVE: CASE EVENT DATE: 20150729
